FAERS Safety Report 7388229-4 (Version None)
Quarter: 2011Q2

REPORT INFORMATION
  Report Type: 
  Country: None (occurrence: None)
  Receive Date: 20110401
  Receipt Date: 20110318
  Transmission Date: 20111010
  Serious: Yes (Other)
  Sender: FDA-Public Use
  Company Number: FR-MYLANLABS-2011S1005729

PATIENT
  Age: 2 Month
  Weight: 3 kg

DRUGS (1)
  1. ACYCLOVIR [Suspect]
     Indication: VARICELLA
     Route: 042

REACTIONS (2)
  - NO ADVERSE EVENT [None]
  - INCORRECT ROUTE OF DRUG ADMINISTRATION [None]
